FAERS Safety Report 24104410 (Version 1)
Quarter: 2024Q3

REPORT INFORMATION
  Report Type: Spontaneous
  Country: US (occurrence: US)
  Receive Date: 20240717
  Receipt Date: 20240717
  Transmission Date: 20241017
  Serious: Yes (Other)
  Sender: BAYER
  Company Number: US-BAYER-2024A101065

PATIENT
  Age: 70 Year
  Sex: Female

DRUGS (4)
  1. MIRALAX [Suspect]
     Active Substance: POLYETHYLENE GLYCOL 3350
     Dosage: UNK UNK, QD
  2. IBSRELA [Concomitant]
     Active Substance: TENAPANOR HYDROCHLORIDE
     Indication: Irritable bowel syndrome
     Dosage: 50 MG, BID
     Route: 048
     Dates: start: 20240118, end: 20240118
  3. IBSRELA [Concomitant]
     Active Substance: TENAPANOR HYDROCHLORIDE
     Indication: Constipation
     Dosage: 50 MG, BID
     Route: 048
     Dates: start: 20240222, end: 2024
  4. IBSRELA [Concomitant]
     Active Substance: TENAPANOR HYDROCHLORIDE
     Indication: Irritable bowel syndrome
     Dosage: 50 MG, BID
     Route: 048
     Dates: start: 2024

REACTIONS (2)
  - Diarrhoea [None]
  - Fatigue [None]
